FAERS Safety Report 7818229-9 (Version None)
Quarter: 2011Q4

REPORT INFORMATION
  Report Type: 
  Country: None (occurrence: None)
  Receive Date: 20111017
  Receipt Date: 20111007
  Transmission Date: 20120403
  Serious: Yes (Hospitalization)
  Sender: FDA-Public Use
  Company Number: US-TYCO HEALTHCARE/MALLINCKRODT-T201102023

PATIENT
  Sex: Male

DRUGS (9)
  1. OPTIRAY 160 [Suspect]
     Indication: COMPUTERISED TOMOGRAM
     Dosage: 116 ML, SINGLE
     Route: 042
     Dates: start: 20111006, end: 20111006
  2. ASPIRIN [Concomitant]
     Dosage: 81 MG, UNK
  3. TRAMADOL HCL [Concomitant]
     Dosage: 50 MG, PRN
  4. NEXIUM [Concomitant]
     Dosage: UNK
  5. METOPROLOL TARTRATE [Concomitant]
     Dosage: 100 MG, UNK
  6. AMITRIPTYLINE HCL [Concomitant]
     Dosage: 25 MG, QD
  7. ATRIPLA [Concomitant]
     Dosage: UNK
  8. HYDROCHLOROTHIAZIDE [Concomitant]
     Dosage: 25 MG, UNK
  9. VITAMIN D [Concomitant]
     Dosage: UNK

REACTIONS (6)
  - DYSPNOEA [None]
  - LACRIMATION INCREASED [None]
  - OROPHARYNGEAL PAIN [None]
  - FACIAL PAIN [None]
  - CHOKING [None]
  - COUGH [None]
